FAERS Safety Report 10015615 (Version 2)
Quarter: 2014Q1

REPORT INFORMATION
  Report Type: Spontaneous
  Country: JP (occurrence: JP)
  Receive Date: 20140317
  Receipt Date: 20140319
  Transmission Date: 20141002
  Serious: No
  Sender: FDA-Public Use
  Company Number: JP-ASTRAZENECA-2014SE16762

PATIENT
  Age: 70 Year
  Sex: Female

DRUGS (1)
  1. DIPRIVAN KIT [Suspect]
     Indication: GENERAL ANAESTHESIA
     Dosage: DOSE UNKNOWN
     Route: 042
     Dates: start: 20140306, end: 20140306

REACTIONS (2)
  - Premature recovery from anaesthesia [Recovered/Resolved]
  - Device infusion issue [Unknown]
